FAERS Safety Report 19956993 (Version 1)
Quarter: 2021Q4

REPORT INFORMATION
  Report Type: Spontaneous
  Country: US (occurrence: US)
  Receive Date: 20211014
  Receipt Date: 20211014
  Transmission Date: 20220303
  Serious: Yes (Other)
  Sender: FDA-Public Use
  Company Number: US-BAXTER-2021BAX031647

PATIENT
  Age: 54 Year
  Sex: Male

DRUGS (5)
  1. NITROGLYCERIN IN DEXTROSE [Suspect]
     Active Substance: NITROGLYCERIN
     Indication: Blood pressure increased
     Route: 041
  2. INSULIN GLARGINE [Concomitant]
     Active Substance: INSULIN GLARGINE
     Indication: Type 2 diabetes mellitus
     Dosage: 20 UNITS SUBCUTANEOUSLY AT BEDTIME
     Route: 058
  3. INSULIN LISPRO [Concomitant]
     Active Substance: INSULIN LISPRO
     Indication: Type 2 diabetes mellitus
     Dosage: 6 UNITS 3 TIMES PER DAY
     Route: 065
  4. INSULIN NOS [Concomitant]
     Active Substance: INSULIN NOS
     Indication: Type 2 diabetes mellitus
     Dosage: INFUSION
     Route: 065
  5. HUMAN RED BLOOD CELL [Concomitant]
     Active Substance: HUMAN RED BLOOD CELL
     Indication: Haemoglobin abnormal
     Dosage: 2 UNITS
     Route: 065

REACTIONS (1)
  - Acute myocardial infarction [Unknown]
